FAERS Safety Report 10446755 (Version 1)
Quarter: 2014Q3

REPORT INFORMATION
  Report Type: Spontaneous
  Country: US (occurrence: US)
  Receive Date: 20140911
  Receipt Date: 20140911
  Transmission Date: 20150326
  Serious: Yes (Death)
  Sender: FDA-Public Use
  Company Number: US-JNJFOC-20140906289

PATIENT
  Sex: Male

DRUGS (1)
  1. UNSPECIFIED FENTANYL [Suspect]
     Active Substance: FENTANYL
     Indication: PRODUCT USED FOR UNKNOWN INDICATION
     Route: 062

REACTIONS (3)
  - Adverse event [Fatal]
  - Product adhesion issue [Unknown]
  - Wrong technique in drug usage process [Unknown]
